FAERS Safety Report 23731720 (Version 1)
Quarter: 2024Q2

REPORT INFORMATION
  Report Type: Spontaneous
  Country: NZ (occurrence: NZ)
  Receive Date: 20240411
  Receipt Date: 20240411
  Transmission Date: 20240716
  Serious: Yes (Death)
  Sender: FDA-Public Use
  Company Number: NZ-ANIPHARMA-2024-NZ-000009

PATIENT
  Age: 77 Year
  Sex: Female

DRUGS (5)
  1. CANDESARTAN CILEXETIL [Suspect]
     Active Substance: CANDESARTAN CILEXETIL
     Indication: Essential hypertension
     Route: 048
     Dates: start: 20141001, end: 20221018
  2. ROSUVASTATIN [Suspect]
     Active Substance: ROSUVASTATIN
     Route: 048
     Dates: start: 20220927, end: 20221019
  3. SIMVASTATIN [Suspect]
     Active Substance: SIMVASTATIN
     Route: 048
     Dates: start: 20140101, end: 20220901
  4. FUROSEMIDE [Concomitant]
     Active Substance: FUROSEMIDE
     Route: 048
     Dates: start: 20140901, end: 20221018
  5. QUETIAPINE [Concomitant]
     Active Substance: QUETIAPINE
     Route: 048
     Dates: start: 20170701, end: 20221018

REACTIONS (4)
  - Drug interaction [Fatal]
  - Rhabdomyolysis [Fatal]
  - Multiple organ dysfunction syndrome [Fatal]
  - Myocardial infarction [Fatal]
